FAERS Safety Report 26161593 (Version 1)
Quarter: 2025Q4

REPORT INFORMATION
  Report Type: Spontaneous
  Country: JP (occurrence: JP)
  Receive Date: 20251216
  Receipt Date: 20251216
  Transmission Date: 20260118
  Serious: Yes (Other)
  Sender: ACCORD
  Company Number: JP-MLMSERVICE-20251124-PI724617-00152-2

PATIENT
  Age: 65 Year
  Sex: Male

DRUGS (25)
  1. FLUOROURACIL [Suspect]
     Active Substance: FLUOROURACIL
     Indication: Rectal cancer stage IV
     Dosage: BOLUS; REPEATED BIWEEKLY AS FIRST-LINE TREATMENT; 21 CYCLES
     Route: 042
  2. OXALIPLATIN [Suspect]
     Active Substance: OXALIPLATIN
     Indication: Rectal cancer stage IV
     Dosage: REPEATED BIWEEKLY AS FIRST-LINE TREATMENT
  3. LEUCOVORIN [Suspect]
     Active Substance: LEUCOVORIN\LEUCOVORIN CALCIUM
     Indication: Rectal cancer stage IV
     Dosage: ON DAY 1; REPEATED BIWEEKLY AS FIRST-LINE TREATMENT; 21 CYCLES
  4. BEVACIZUMAB [Suspect]
     Active Substance: BEVACIZUMAB
     Indication: Rectal cancer stage IV
     Dosage: REPEATED BIWEEKLY AS FIRST-LINE TREATMENT; 21 CYCLES
  5. PREDNISOLONE [Concomitant]
     Active Substance: PREDNISOLONE
     Indication: Sarcoidosis
     Dosage: HE HAD BEEN TAKING AT A DOSE OF 5 MG/DAY FOR APPROXIMATELY 10 YEARS
  6. LEUCOVORIN [Suspect]
     Active Substance: LEUCOVORIN\LEUCOVORIN CALCIUM
     Indication: Metastases to lung
     Dosage: ON DAY 1; REPEATED BIWEEKLY AS FIRST-LINE TREATMENT; 21 CYCLES
  7. OXALIPLATIN [Suspect]
     Active Substance: OXALIPLATIN
     Indication: Metastases to lymph nodes
     Dosage: DOSE REDUCED
  8. BEVACIZUMAB [Suspect]
     Active Substance: BEVACIZUMAB
     Indication: Metastases to lung
     Dosage: REPEATED BIWEEKLY AS FIRST-LINE TREATMENT; 21 CYCLES
  9. OXALIPLATIN [Suspect]
     Active Substance: OXALIPLATIN
     Indication: Metastases to liver
     Dosage: REPEATED BIWEEKLY AS FIRST-LINE TREATMENT
  10. OXALIPLATIN [Suspect]
     Active Substance: OXALIPLATIN
     Indication: Metastases to lymph nodes
     Dosage: REPEATED BIWEEKLY AS FIRST-LINE TREATMENT
  11. OXALIPLATIN [Suspect]
     Active Substance: OXALIPLATIN
     Indication: Metastases to lung
     Dosage: DOSE REDUCED
  12. OXALIPLATIN [Suspect]
     Active Substance: OXALIPLATIN
     Indication: Metastases to liver
     Dosage: DOSE REDUCED
  13. FLUOROURACIL [Suspect]
     Active Substance: FLUOROURACIL
     Indication: Metastases to liver
     Dosage: BOLUS; REPEATED BIWEEKLY AS FIRST-LINE TREATMENT; 21 CYCLES
     Route: 042
  14. FLUOROURACIL [Suspect]
     Active Substance: FLUOROURACIL
     Indication: Metastases to lymph nodes
     Dosage: BOLUS; REPEATED BIWEEKLY AS FIRST-LINE TREATMENT; 21 CYCLES
     Route: 042
  15. FLUOROURACIL [Suspect]
     Active Substance: FLUOROURACIL
     Indication: Rectal cancer stage IV
     Dosage: VIA CONTINUOUS INFUSION OVER 48 H; REPEATED BIWEEKLY AS FIRST-LINE TREATMENT; 21 CYCLES
     Route: 042
  16. FLUOROURACIL [Suspect]
     Active Substance: FLUOROURACIL
     Indication: Metastases to lung
     Dosage: VIA CONTINUOUS INFUSION OVER 48 H; REPEATED BIWEEKLY AS FIRST-LINE TREATMENT; 21 CYCLES
     Route: 042
  17. FLUOROURACIL [Suspect]
     Active Substance: FLUOROURACIL
     Indication: Metastases to liver
     Dosage: VIA CONTINUOUS INFUSION OVER 48 H; REPEATED BIWEEKLY AS FIRST-LINE TREATMENT; 21 CYCLES
     Route: 042
  18. FLUOROURACIL [Suspect]
     Active Substance: FLUOROURACIL
     Indication: Metastases to lymph nodes
     Dosage: VIA CONTINUOUS INFUSION OVER 48 H; REPEATED BIWEEKLY AS FIRST-LINE TREATMENT; 21 CYCLES
     Route: 042
  19. LEUCOVORIN [Suspect]
     Active Substance: LEUCOVORIN\LEUCOVORIN CALCIUM
     Indication: Metastases to liver
     Dosage: ON DAY 1; REPEATED BIWEEKLY AS FIRST-LINE TREATMENT; 21 CYCLES
  20. LEUCOVORIN [Suspect]
     Active Substance: LEUCOVORIN\LEUCOVORIN CALCIUM
     Indication: Metastases to lymph nodes
     Dosage: ON DAY 1; REPEATED BIWEEKLY AS FIRST-LINE TREATMENT; 21 CYCLES
  21. BEVACIZUMAB [Suspect]
     Active Substance: BEVACIZUMAB
     Indication: Metastases to lymph nodes
     Dosage: REPEATED BIWEEKLY AS FIRST-LINE TREATMENT; 21 CYCLES
  22. BEVACIZUMAB [Suspect]
     Active Substance: BEVACIZUMAB
     Indication: Metastases to liver
     Dosage: REPEATED BIWEEKLY AS FIRST-LINE TREATMENT; 21 CYCLES
  23. OXALIPLATIN [Suspect]
     Active Substance: OXALIPLATIN
     Indication: Rectal cancer stage IV
     Dosage: DOSE REDUCED
  24. OXALIPLATIN [Suspect]
     Active Substance: OXALIPLATIN
     Indication: Metastases to lung
     Dosage: REPEATED BIWEEKLY AS FIRST-LINE TREATMENT
  25. FLUOROURACIL [Suspect]
     Active Substance: FLUOROURACIL
     Indication: Metastases to lung
     Dosage: BOLUS; REPEATED BIWEEKLY AS FIRST-LINE TREATMENT; 21 CYCLES
     Route: 042

REACTIONS (1)
  - Pneumonitis [Unknown]
